FAERS Safety Report 4582958-3 (Version None)
Quarter: 2005Q1

REPORT INFORMATION
  Report Type: 
  Country: None (occurrence: None)
  Receive Date: 20050127
  Receipt Date: 20040917
  Transmission Date: 20050727
  Serious: No
  Sender: FDA-Public Use
  Company Number: USA040978602

PATIENT
  Age: 12 Year
  Sex: Male
  Weight: 34 kg

DRUGS (1)
  1. STRATTERA [Suspect]
     Indication: ATTENTION DEFICIT/HYPERACTIVITY DISORDER
     Dosage: 40 MG/ 1 DAY

REACTIONS (5)
  - FEELING ABNORMAL [None]
  - NERVOUSNESS [None]
  - PRESCRIBED OVERDOSE [None]
  - SOMNOLENCE [None]
  - WEIGHT DECREASED [None]
